FAERS Safety Report 21442450 (Version 1)
Quarter: 2022Q4

REPORT INFORMATION
  Report Type: Spontaneous
  Country: US (occurrence: None)
  Receive Date: 20221010
  Receipt Date: 20221010
  Transmission Date: 20230113
  Serious: No
  Sender: FDA-Public Use
  Company Number: None

PATIENT

DRUGS (1)
  1. ABIRATERONE [Suspect]
     Active Substance: ABIRATERONE
     Dosage: FREQUENCY : DAILY;?
     Route: 048

REACTIONS (9)
  - Peripheral swelling [None]
  - Peripheral swelling [None]
  - Malaise [None]
  - Hypotonia [None]
  - Dizziness [None]
  - Arthralgia [None]
  - Pain in extremity [None]
  - Spinal fracture [None]
  - Atrial fibrillation [None]
